FAERS Safety Report 12108839 (Version 2)
Quarter: 2016Q2

REPORT INFORMATION
  Report Type: Spontaneous
  Country: NO (occurrence: NO)
  Receive Date: 20160224
  Receipt Date: 20160421
  Transmission Date: 20160815
  Serious: Yes (Life-Threatening, Other)
  Sender: FDA-Public Use
  Company Number: NO-AMGEN-NORSP2016021242

PATIENT
  Age: 32 Year
  Sex: Male

DRUGS (2)
  1. METEX                              /00113802/ [Suspect]
     Active Substance: METHOTREXATE SODIUM
     Indication: PSORIATIC ARTHROPATHY
     Dosage: 20 MG, UNK
     Route: 058
     Dates: start: 2011, end: 2015
  2. ENBREL [Suspect]
     Active Substance: ETANERCEPT
     Indication: PSORIATIC ARTHROPATHY
     Dosage: 50 MG, UNK
     Route: 058
     Dates: start: 2011, end: 2015

REACTIONS (1)
  - Diffuse large B-cell lymphoma [Recovered/Resolved with Sequelae]

NARRATIVE: CASE EVENT DATE: 20150817
